FAERS Safety Report 16842170 (Version 1)
Quarter: 2019Q3

REPORT INFORMATION
  Report Type: Report from Study
  Country: None (occurrence: US)
  Receive Date: 20190923
  Receipt Date: 20190923
  Transmission Date: 20191005
  Serious: Yes (Hospitalization, Other)
  Sender: FDA-Public Use
  Company Number: US-ABBVIE-19K-163-2773766-00

PATIENT
  Age: 74 Year
  Sex: Male

DRUGS (3)
  1. VENCLEXTA [Suspect]
     Active Substance: VENETOCLAX
     Indication: CHRONIC LYMPHOCYTIC LEUKAEMIA
     Route: 048
     Dates: start: 20171101, end: 201902
  2. HYDROXYCHLOROQUINE [Concomitant]
     Active Substance: HYDROXYCHLOROQUINE
     Indication: PRODUCT USED FOR UNKNOWN INDICATION
     Dates: end: 2019
  3. VENCLEXTA [Suspect]
     Active Substance: VENETOCLAX
     Route: 048
     Dates: start: 201902, end: 2019

REACTIONS (11)
  - Staphylococcal infection [Recovering/Resolving]
  - Product lot number issue [Unknown]
  - Asthenia [Not Recovered/Not Resolved]
  - Pulmonary oedema [Recovered/Resolved]
  - Fatigue [Not Recovered/Not Resolved]
  - Cytomegalovirus infection [Recovering/Resolving]
  - Poor quality sleep [Recovering/Resolving]
  - Platelet count decreased [Not Recovered/Not Resolved]
  - Bronchial disorder [Recovered/Resolved]
  - Back pain [Recovered/Resolved]
  - Dizziness [Unknown]

NARRATIVE: CASE EVENT DATE: 2019
